FAERS Safety Report 6608026-4 (Version None)
Quarter: 2010Q1

REPORT INFORMATION
  Report Type: 
  Country: None (occurrence: None)
  Receive Date: 20100301
  Receipt Date: 20100222
  Transmission Date: 20100710
  Serious: Yes (Death)
  Sender: FDA-Public Use
  Company Number: CHPA2010US03742

PATIENT
  Age: 30 Year
  Sex: Female

DRUGS (2)
  1. DIPHENHYDRAMINE (NCH) [Suspect]
     Route: 048
  2. CLONIDINE [Suspect]
     Route: 048

REACTIONS (1)
  - DRUG ABUSE [None]
